FAERS Safety Report 12197815 (Version 1)
Quarter: 2016Q1

REPORT INFORMATION
  Report Type: Spontaneous
  Country: US (occurrence: None)
  Receive Date: 20160321
  Receipt Date: 20160321
  Transmission Date: 20160526
  Serious: Yes (Other)
  Sender: FDA-Public Use
  Company Number: None

PATIENT
  Age: 50 Year
  Sex: Female
  Weight: 108.86 kg

DRUGS (11)
  1. LIOTHYROXINE [Concomitant]
  2. IRON [Concomitant]
     Active Substance: IRON
  3. TRAZODONE [Suspect]
     Active Substance: TRAZODONE HYDROCHLORIDE
     Indication: SLEEP DISORDER
     Dosage: 1 PILL 1 PILL AT NIGHT MOUTH
     Route: 048
     Dates: start: 20160206
  4. LISINOPRIL. [Concomitant]
     Active Substance: LISINOPRIL
  5. VENLAFAXINE HCL [Concomitant]
     Active Substance: VENLAFAXINE HYDROCHLORIDE
  6. LEVOTHYROXINE. [Concomitant]
     Active Substance: LEVOTHYROXINE
  7. VITAMIN D [Concomitant]
     Active Substance: CHOLECALCIFEROL
  8. CYCLAFEM [Concomitant]
  9. MAGNESIUM [Concomitant]
     Active Substance: MAGNESIUM
  10. ATORVASTATIN [Concomitant]
     Active Substance: ATORVASTATIN
  11. POTASSIUM [Concomitant]
     Active Substance: POTASSIUM

REACTIONS (9)
  - Impaired driving ability [None]
  - Swelling face [None]
  - Pain [None]
  - Fatigue [None]
  - Headache [None]
  - Dizziness [None]
  - Fluid retention [None]
  - Therapy cessation [None]
  - Somnolence [None]
